FAERS Safety Report 8154572-4 (Version None)
Quarter: 2012Q1

REPORT INFORMATION
  Report Type: 
  Country: None (occurrence: None)
  Receive Date: 20120221
  Receipt Date: 20120217
  Transmission Date: 20120608
  Serious: Yes (Death, Hospitalization)
  Sender: FDA-Public Use
  Company Number: ES-ROCHE-1037165

PATIENT
  Sex: Male
  Weight: 68 kg

DRUGS (2)
  1. OMEPRAZOLE [Concomitant]
     Dates: start: 20110922
  2. VEMURAFENIB [Suspect]
     Indication: METASTATIC MALIGNANT MELANOMA
     Route: 048
     Dates: start: 20110922, end: 20120131

REACTIONS (1)
  - SEPSIS [None]
